FAERS Safety Report 4705599-3 (Version None)
Quarter: 2005Q3

REPORT INFORMATION
  Report Type: 
  Country: None (occurrence: None)
  Receive Date: 20050701
  Receipt Date: 20050627
  Transmission Date: 20060218
  Serious: Yes (Death, Hospitalization)
  Sender: FDA-Public Use
  Company Number: US-BOEHRINGER INGELHEIM PHARMACEUTICALS, INC.-2005-BP-10890BP

PATIENT
  Sex: Male
  Weight: 58.96 kg

DRUGS (5)
  1. TIPRANAVIR / RITONAVIR CAPSULES [Suspect]
     Indication: HIV INFECTION
     Dosage: TPV/R 1000/400 MG
     Route: 048
  2. EPIVIR [Concomitant]
     Indication: HIV INFECTION
     Route: 048
     Dates: start: 20050529, end: 20050601
  3. ZERIT [Concomitant]
     Indication: HIV INFECTION
     Route: 048
     Dates: start: 20050529, end: 20050601
  4. FUZEON [Concomitant]
     Indication: HIV INFECTION
     Route: 058
     Dates: start: 20050529, end: 20050601
  5. MEPRON [Concomitant]
     Indication: HIV INFECTION
     Route: 048
     Dates: start: 20050529, end: 20050601

REACTIONS (3)
  - DEHYDRATION [None]
  - HOSPITALISATION [None]
  - PYREXIA [None]
